FAERS Safety Report 6110435-7 (Version None)
Quarter: 2009Q1

REPORT INFORMATION
  Report Type: 
  Country: None (occurrence: None)
  Receive Date: 20090310
  Receipt Date: 20090227
  Transmission Date: 20090719
  Serious: Yes (Other)
  Sender: FDA-Public Use
  Company Number: GB-AMGEN-UK327186

PATIENT
  Age: 77 Year
  Sex: Male

DRUGS (9)
  1. ARANESP [Suspect]
     Indication: MULTIPLE MYELOMA
     Route: 065
     Dates: start: 20080101, end: 20080101
  2. REVLIMID [Suspect]
     Indication: MULTIPLE MYELOMA
     Route: 048
     Dates: start: 20080802
  3. REVLIMID [Suspect]
     Route: 048
     Dates: start: 20080905, end: 20080909
  4. ALLOPURINOL [Concomitant]
     Route: 065
  5. ERYTHROPOIETIN HUMAN [Concomitant]
     Route: 065
  6. DEXAMETHASONE [Concomitant]
     Indication: MULTIPLE MYELOMA
     Route: 065
     Dates: start: 20080802
  7. MELPHALAN [Concomitant]
     Route: 065
  8. THALIDOMIDE [Concomitant]
     Indication: MULTIPLE MYELOMA
     Route: 065
     Dates: start: 20080601, end: 20080801
  9. PREDNISONE [Concomitant]
     Route: 065

REACTIONS (1)
  - DERMATITIS EXFOLIATIVE [None]
